FAERS Safety Report 16050159 (Version 1)
Quarter: 2019Q1

REPORT INFORMATION
  Report Type: Spontaneous
  Country: DE (occurrence: DE)
  Receive Date: 20190308
  Receipt Date: 20190308
  Transmission Date: 20190418
  Serious: Yes (Other)
  Sender: FDA-Public Use
  Company Number: DE-DRREDDYS-GER/GER/19/0108216

PATIENT
  Age: 51 Year
  Sex: Male
  Weight: 76 kg

DRUGS (2)
  1. CIPROFLOXACIN. [Suspect]
     Active Substance: CIPROFLOXACIN
     Indication: PRODUCT USED FOR UNKNOWN INDICATION
     Dosage: 2 X 500MG UBER 4 WOCHEN (OVER 4 WEEKS)
     Dates: start: 201805
  2. LEVOFLOXACIN. [Suspect]
     Active Substance: LEVOFLOXACIN
     Indication: PRODUCT USED FOR UNKNOWN INDICATION
     Dosage: 2 X 500MG TAGLICH UBER 5 TAGE (DAILY OVER 5 DAYS)
     Route: 048
     Dates: start: 201412

REACTIONS (17)
  - Tendon pain [Recovered/Resolved with Sequelae]
  - Tendon rupture [Recovered/Resolved with Sequelae]
  - Inflammation [Recovered/Resolved with Sequelae]
  - Neuropathy peripheral [Recovered/Resolved with Sequelae]
  - Nervous system disorder [Recovered/Resolved with Sequelae]
  - Fatigue [Recovered/Resolved with Sequelae]
  - Inguinal hernia [Recovered/Resolved with Sequelae]
  - Motor dysfunction [Recovered/Resolved with Sequelae]
  - Suicidal ideation [Unknown]
  - Mental disorder [Unknown]
  - Myalgia [Recovered/Resolved with Sequelae]
  - Ocular discomfort [Unknown]
  - Dysaesthesia [Recovered/Resolved with Sequelae]
  - Impaired work ability [Unknown]
  - Weight bearing difficulty [Unknown]
  - Arthralgia [Recovered/Resolved with Sequelae]
  - Depressed mood [Unknown]

NARRATIVE: CASE EVENT DATE: 2015
